FAERS Safety Report 23214198 (Version 1)
Quarter: 2023Q4

REPORT INFORMATION
  Report Type: Spontaneous
  Country: US (occurrence: None)
  Receive Date: 20231121
  Receipt Date: 20231121
  Transmission Date: 20240110
  Serious: No
  Sender: FDA-Public Use
  Company Number: None

PATIENT
  Age: 45 Year
  Sex: Female

DRUGS (2)
  1. DUPIXENT [Suspect]
     Active Substance: DUPILUMAB
     Indication: Eosinophilic oesophagitis
     Dosage: OTHER FREQUENCY : EVERY WEEK;?
     Route: 058
  2. DUPIXENT [Concomitant]
     Active Substance: DUPILUMAB
     Dates: start: 20231027

REACTIONS (5)
  - Mood altered [None]
  - Crying [None]
  - Feeling abnormal [None]
  - Sensitivity to weather change [None]
  - Ill-defined disorder [None]

NARRATIVE: CASE EVENT DATE: 20231121
